FAERS Safety Report 23100442 (Version 3)
Quarter: 2023Q4

REPORT INFORMATION
  Report Type: Spontaneous
  Country: US (occurrence: US)
  Receive Date: 20231024
  Receipt Date: 20231115
  Transmission Date: 20240110
  Serious: No
  Sender: FDA-Public Use
  Company Number: US-PFIZER INC-202300336311

PATIENT
  Age: 56 Year
  Sex: Female

DRUGS (1)
  1. METHOTREXATE SODIUM [Suspect]
     Active Substance: METHOTREXATE SODIUM
     Dosage: 0.8 ML, WEEKLY, ON THE SAME DAY
     Route: 058

REACTIONS (5)
  - Arthralgia [Recovering/Resolving]
  - Alopecia [Unknown]
  - Chest pain [Unknown]
  - Paraesthesia [Unknown]
  - Drug hypersensitivity [Unknown]
